FAERS Safety Report 4421833-1 (Version None)
Quarter: 2004Q3

REPORT INFORMATION
  Report Type: 
  Country: None (occurrence: None)
  Receive Date: 20040806
  Receipt Date: 20040729
  Transmission Date: 20050211
  Serious: Yes (Other)
  Sender: FDA-Public Use
  Company Number: VISP-PR-0407S-0269

PATIENT
  Age: 67 Year
  Sex: Female

DRUGS (2)
  1. VISIPAQUE [Suspect]
     Indication: CAROTID ARTERY DISEASE
     Dosage: 200 ML, SINGLE  DOSE, I.A.
     Dates: start: 20040727, end: 20040727
  2. GLUCOPHAGE [Suspect]

REACTIONS (1)
  - CEREBRAL INFARCTION [None]
